FAERS Safety Report 16971825 (Version 1)
Quarter: 2019Q4

REPORT INFORMATION
  Report Type: Spontaneous
  Country: US (occurrence: US)
  Receive Date: 20190912
  Receipt Date: 20190912
  Transmission Date: 20200122
  Serious: Yes (Other)
  Sender: FDA-Public Use
  Company Number: None

PATIENT
  Age: 75 Year
  Sex: Female
  Weight: 72.57 kg

DRUGS (8)
  1. BYDUREON BCISE [Concomitant]
     Active Substance: EXENATIDE
  2. JENTADUETO XR [Suspect]
     Active Substance: LINAGLIPTIN\METFORMIN HYDROCHLORIDE
     Indication: DIABETES MELLITUS
     Dosage: ?          QUANTITY:1 DF DOSAGE FORM;?
     Route: 048
     Dates: start: 20180618, end: 20190219
  3. DELARA [Concomitant]
  4. GLYSET [Concomitant]
     Active Substance: MIGLITOL
  5. LIPITOR [Concomitant]
     Active Substance: ATORVASTATIN CALCIUM
  6. PIOGLITAZONE. [Concomitant]
     Active Substance: PIOGLITAZONE
  7. EXFROGE [Concomitant]
  8. AMARYL HM [Concomitant]

REACTIONS (6)
  - Weight decreased [None]
  - Stress [None]
  - Decreased appetite [None]
  - Blood glucose fluctuation [None]
  - Anxiety [None]
  - Diarrhoea [None]

NARRATIVE: CASE EVENT DATE: 201902
